FAERS Safety Report 18108402 (Version 1)
Quarter: 2020Q3

REPORT INFORMATION
  Report Type: Spontaneous
  Country: GB (occurrence: GB)
  Receive Date: 20200803
  Receipt Date: 20200803
  Transmission Date: 20201103
  Serious: Yes (Other)
  Sender: FDA-Public Use
  Company Number: GB-PERRIGO-20GB010633

PATIENT
  Age: 46 Year
  Sex: Male
  Weight: 115 kg

DRUGS (2)
  1. PARACETAMOL [Suspect]
     Active Substance: ACETAMINOPHEN
     Indication: PRODUCT USED FOR UNKNOWN INDICATION
     Dosage: 500 MG
     Route: 065
     Dates: start: 20200708
  2. LYMECYCLINE [Concomitant]
     Active Substance: LYMECYCLINE
     Dosage: 1 DF, QD
     Dates: start: 20200311, end: 20200708

REACTIONS (1)
  - Dermatitis allergic [Unknown]

NARRATIVE: CASE EVENT DATE: 20200708
